FAERS Safety Report 6099626-1 (Version None)
Quarter: 2009Q1

REPORT INFORMATION
  Report Type: 
  Country: None (occurrence: None)
  Receive Date: 20090303
  Receipt Date: 20090220
  Transmission Date: 20090719
  Serious: Yes (Life-Threatening, Hospitalization, Other)
  Sender: FDA-Public Use
  Company Number: SE-AVENTIS-200910939GDDC

PATIENT
  Age: 69 Year
  Sex: Male

DRUGS (7)
  1. INSULIN GLARGINE [Suspect]
     Indication: DIABETES MELLITUS
     Route: 058
     Dates: start: 20050425
  2. OPTIPEN (INSULIN PUMP) [Suspect]
     Indication: DIABETES MELLITUS
  3. CODE UNBROKEN [Suspect]
     Dosage: DOSE QUANTITY: 1
  4. ENALAPRIL [Concomitant]
     Dates: start: 20050101
  5. METOPROLOL [Concomitant]
     Dates: start: 20050101
  6. TROMBYL [Concomitant]
     Dates: start: 20050101
  7. LIPITOR [Concomitant]
     Dates: start: 20050101

REACTIONS (7)
  - COMA [None]
  - CONVULSION [None]
  - DIZZINESS [None]
  - HYPERHIDROSIS [None]
  - HYPOGLYCAEMIC COMA [None]
  - RADIUS FRACTURE [None]
  - SYNCOPE [None]
